FAERS Safety Report 5289381-7 (Version None)
Quarter: 2007Q2

REPORT INFORMATION
  Report Type: 
  Country: None (occurrence: None)
  Receive Date: 20070404
  Receipt Date: 20070404
  Transmission Date: 20071010
  Serious: Yes (Life-Threatening)
  Sender: FDA-Public Use
  Company Number: None

PATIENT
  Age: 28 Year
  Sex: Female
  Weight: 77 kg

DRUGS (1)
  1. ACETAMINOPHEN [Suspect]
     Indication: SUICIDE ATTEMPT
     Dosage: PO
     Route: 048
     Dates: start: 20070328, end: 20070328

REACTIONS (4)
  - INTENTIONAL SELF-INJURY [None]
  - LACERATION [None]
  - OVERDOSE [None]
  - SUICIDE ATTEMPT [None]
